FAERS Safety Report 5372218-5 (Version None)
Quarter: 2007Q2

REPORT INFORMATION
  Report Type: 
  Country: None (occurrence: None)
  Receive Date: 20070627
  Receipt Date: 20070619
  Transmission Date: 20071010
  Serious: Yes (Other)
  Sender: FDA-Public Use
  Company Number: B0476813A

PATIENT
  Age: 79 Year
  Sex: Male

DRUGS (11)
  1. CLENIL [Suspect]
     Indication: ASTHMA
     Route: 055
     Dates: start: 20070523, end: 20070523
  2. ALENDRONIC ACID [Concomitant]
     Dosage: 70MG WEEKLY
     Route: 065
  3. ACETYLSALICYLIC ACID SRT [Concomitant]
  4. BECLOMETHASONE DIPROPIONATE [Concomitant]
     Dosage: 200UG TWICE PER DAY
     Route: 065
  5. CALCICHEW D3 [Concomitant]
     Indication: OSTEOPOROSIS
     Route: 048
  6. ASPIRIN [Concomitant]
     Dosage: 75MG PER DAY
     Route: 065
  7. DIGOXIN [Concomitant]
     Dosage: 65.5UG PER DAY
     Route: 065
  8. VALSARTAN [Concomitant]
     Indication: CARDIAC FAILURE
     Dosage: 80MG PER DAY
     Route: 048
  9. OMEPRAZOLE [Concomitant]
     Indication: DYSPEPSIA
     Dosage: 20MG TWICE PER DAY
     Route: 048
  10. SALBUTAMOL [Concomitant]
     Indication: ASTHMA
     Dosage: 100UG PER DAY
     Route: 055
  11. SALMETEROL [Concomitant]
     Indication: ASTHMA
     Route: 055

REACTIONS (1)
  - PALLOR [None]
